FAERS Safety Report 23331693 (Version 1)
Quarter: 2023Q4

REPORT INFORMATION
  Report Type: Report from Study
  Country: CA (occurrence: CA)
  Receive Date: 20231222
  Receipt Date: 20231222
  Transmission Date: 20240109
  Serious: Yes (Hospitalization)
  Sender: FDA-Public Use
  Company Number: CA-JNJFOC-20231247537

PATIENT
  Age: 57 Year
  Sex: Female

DRUGS (1)
  1. REMICADE [Suspect]
     Active Substance: INFLIXIMAB
     Indication: Psoriasis
     Route: 041
     Dates: start: 20151111

REACTIONS (5)
  - Contusion [Unknown]
  - Syncope [Unknown]
  - Tooth loss [Unknown]
  - Loose tooth [Unknown]
  - Off label use [Unknown]

NARRATIVE: CASE EVENT DATE: 20151111
